FAERS Safety Report 5067140-8 (Version None)
Quarter: 2006Q3

REPORT INFORMATION
  Report Type: 
  Country: None (occurrence: None)
  Receive Date: 20060727
  Receipt Date: 20060712
  Transmission Date: 20061208
  Serious: Yes (Hospitalization, Disabling, Other)
  Sender: FDA-Public Use
  Company Number: 2006063568

PATIENT
  Age: 59 Year
  Sex: Male
  Weight: 117.9352 kg

DRUGS (7)
  1. CELEBREX [Suspect]
     Indication: ARTHRITIS
     Dosage: 200 MG (100 MG, 2 IN 1 D)
     Dates: start: 19990101, end: 20020101
  2. CELEBREX [Suspect]
     Indication: PAIN
     Dosage: 200 MG (100 MG, 2 IN 1 D)
     Dates: start: 19990101, end: 20020101
  3. PRAVACHOL [Concomitant]
  4. TOPROL-XL [Concomitant]
  5. ENALAPRIL MALEATE [Concomitant]
  6. IMDUR [Concomitant]
  7. ASPIRIN [Concomitant]

REACTIONS (15)
  - ANGINA PECTORIS [None]
  - ANXIETY [None]
  - AORTIC VALVE INCOMPETENCE [None]
  - BLOOD PRESSURE SYSTOLIC INCREASED [None]
  - CARDIAC FAILURE [None]
  - CARDIAC STRESS TEST ABNORMAL [None]
  - CARDIOMEGALY [None]
  - DILATATION VENTRICULAR [None]
  - EJECTION FRACTION DECREASED [None]
  - FAECES DISCOLOURED [None]
  - INSOMNIA [None]
  - LUNG DISORDER [None]
  - RESPIRATORY DISORDER [None]
  - SCAN MYOCARDIAL PERFUSION ABNORMAL [None]
  - VASCULAR GRAFT OCCLUSION [None]
